FAERS Safety Report 14243252 (Version 1)
Quarter: 2017Q4

REPORT INFORMATION
  Report Type: Report from Study
  Country: MX (occurrence: MX)
  Receive Date: 20171201
  Receipt Date: 20171201
  Transmission Date: 20180321
  Serious: Yes (Hospitalization, Other)
  Sender: FDA-Public Use
  Company Number: MX-BRISTOL-MYERS SQUIBB COMPANY-BMS-2017-106452

PATIENT
  Age: 54 Year
  Sex: Female

DRUGS (1)
  1. DASATINIB. [Suspect]
     Active Substance: DASATINIB
     Indication: CHRONIC MYELOID LEUKAEMIA
     Dosage: 100 MG, QD
     Route: 048
     Dates: start: 20160822, end: 20171015

REACTIONS (3)
  - Pulmonary congestion [Recovering/Resolving]
  - Pancytopenia [Unknown]
  - Chronic myeloid leukaemia transformation [Unknown]

NARRATIVE: CASE EVENT DATE: 20171015
